FAERS Safety Report 10428682 (Version 1)
Quarter: 2014Q3

REPORT INFORMATION
  Report Type: Spontaneous
  Country: PL (occurrence: None)
  Receive Date: 20140829
  Receipt Date: 20140829
  Transmission Date: 20150326
  Serious: Yes (Other)
  Sender: FDA-Public Use
  Company Number: 2014AP004211

PATIENT
  Age: 27 Year
  Sex: Male
  Weight: 76.5 kg

DRUGS (1)
  1. OLANZAPINE (OLANZAPINE) TABLET [Suspect]
     Active Substance: OLANZAPINE
     Indication: SCHIZOPHRENIA, PARANOID TYPE
     Dosage: SLOWLY INCREASED TO 15 MG, AT BEDTIME, UNKNOWN

REACTIONS (5)
  - Dyslipidaemia [None]
  - Liver injury [None]
  - Blood bilirubin abnormal [None]
  - Hypertriglyceridaemia [None]
  - Transaminases increased [None]
